FAERS Safety Report 4519125-5 (Version None)
Quarter: 2004Q4

REPORT INFORMATION
  Report Type: 
  Country: None (occurrence: None)
  Receive Date: 20041206
  Receipt Date: 20041130
  Transmission Date: 20050328
  Serious: Yes (Death)
  Sender: FDA-Public Use
  Company Number: US-JNJFOC-20041200407

PATIENT
  Sex: Male

DRUGS (6)
  1. RISPERDAL [Suspect]
     Indication: ANGER
     Route: 049
  2. RISPERDAL [Suspect]
     Indication: DEMENTIA
     Route: 049
  3. LIPITOR [Concomitant]
     Route: 049
  4. MICARDIS [Concomitant]
     Route: 049
  5. ACETYLSALICYLIC ACID [Concomitant]
     Route: 049
  6. PLAVIX [Concomitant]
     Route: 049

REACTIONS (1)
  - MYOCARDIAL INFARCTION [None]
